FAERS Safety Report 6214301-8 (Version None)
Quarter: 2009Q2

REPORT INFORMATION
  Report Type: 
  Country: None (occurrence: None)
  Receive Date: 20090604
  Receipt Date: 20090527
  Transmission Date: 20091009
  Serious: Yes (Other)
  Sender: FDA-Public Use
  Company Number: JP-BAYER-200910806BYL

PATIENT
  Age: 43 Year
  Sex: Female
  Weight: 50 kg

DRUGS (5)
  1. MIRENA [Suspect]
     Indication: ENDOMETRIAL HYPERPLASIA
     Dosage: CONT.
     Route: 015
     Dates: start: 20070706, end: 20080804
  2. FLOMOX [Concomitant]
     Indication: INFECTION PROPHYLAXIS
     Dosage: TOTAL DAILY DOSE: 300 MG  UNIT DOSE: 100 MG
     Route: 048
     Dates: start: 20070706, end: 20070707
  3. LOXONIN [Concomitant]
     Indication: APPLICATION SITE PAIN
     Dosage: TOTAL DAILY DOSE: 1 DF
     Route: 048
     Dates: start: 20070706, end: 20070706
  4. LANIRAPID [Concomitant]
     Indication: ATRIAL FIBRILLATION
     Dosage: TOTAL DAILY DOSE: 0.1 MG  UNIT DOSE: 0.1 MG
     Route: 048
     Dates: start: 20070301, end: 20070801
  5. ASPIRIN [Concomitant]
     Indication: ARRHYTHMIA
     Dosage: TOTAL DAILY DOSE: 100 MG  UNIT DOSE: 100 MG
     Route: 048
     Dates: start: 20070301, end: 20071231

REACTIONS (2)
  - ENDOMETRIOSIS [None]
  - METRORRHAGIA [None]
